FAERS Safety Report 23176483 (Version 1)
Quarter: 2023Q4

REPORT INFORMATION
  Report Type: Spontaneous
  Country: US (occurrence: None)
  Receive Date: 20231109
  Receipt Date: 20231109
  Transmission Date: 20240109
  Serious: No
  Sender: FDA-Public Use
  Company Number: None

PATIENT
  Age: 68 Year
  Sex: Female
  Weight: 81.65 kg

DRUGS (1)
  1. SIMPONI ARIA [Suspect]
     Active Substance: GOLIMUMAB
     Indication: Rheumatoid arthritis
     Dosage: OTHER FREQUENCY : WEEK 0 AND WEEK 4;?INFUSE 180 MG INTRVENOUSLY OVER 30 MINUTES AT WEEK 0 SND WEEK 4
     Route: 042
     Dates: start: 202310

REACTIONS (1)
  - Heart rate increased [None]
